FAERS Safety Report 18964106 (Version 2)
Quarter: 2021Q1

REPORT INFORMATION
  Report Type: Spontaneous
  Country: US (occurrence: US)
  Receive Date: 20210303
  Receipt Date: 20210315
  Transmission Date: 20210420
  Serious: Yes (Other)
  Sender: FDA-Public Use
  Company Number: US-PFIZER INC-2021207177

PATIENT
  Age: 34 Year
  Sex: Male
  Weight: 86.18 kg

DRUGS (2)
  1. XELJANZ XR [Suspect]
     Active Substance: TOFACITINIB CITRATE
     Indication: COLITIS ULCERATIVE
     Dosage: 22 MG
     Dates: start: 202003
  2. XELJANZ XR [Suspect]
     Active Substance: TOFACITINIB CITRATE
     Dosage: 11 MG, 1X/DAY (11MG ORALLY WITH BREAKFAST ONCE DAY )
     Route: 048
     Dates: start: 2020

REACTIONS (4)
  - Road traffic accident [Unknown]
  - Concussion [Not Recovered/Not Resolved]
  - Muscular weakness [Recovering/Resolving]
  - Limb crushing injury [Not Recovered/Not Resolved]

NARRATIVE: CASE EVENT DATE: 20201125
